FAERS Safety Report 5528309-9 (Version None)
Quarter: 2007Q4

REPORT INFORMATION
  Report Type: 
  Country: None (occurrence: None)
  Receive Date: 20071128
  Receipt Date: 20071116
  Transmission Date: 20080405
  Serious: Yes (Other)
  Sender: FDA-Public Use
  Company Number: CA-PFIZER INC-2007097449

PATIENT
  Age: 54 Year
  Sex: Female

DRUGS (13)
  1. CHAMPIX [Suspect]
     Route: 048
  2. CALCIUM CARBONATE [Concomitant]
  3. VITAMIN D [Concomitant]
  4. CELEXA [Concomitant]
  5. LEVAQUIN [Concomitant]
  6. ATROVENT [Concomitant]
     Route: 055
  7. VENTOLIN [Concomitant]
  8. TYLENOL [Concomitant]
  9. GRAVOL TAB [Concomitant]
  10. DULCOLAX [Concomitant]
  11. SINEMET [Concomitant]
  12. SERAX [Concomitant]
  13. MILK OF MAGNESIA [Concomitant]

REACTIONS (2)
  - BLOOD PRESSURE INCREASED [None]
  - HEADACHE [None]
